FAERS Safety Report 5146414-6 (Version None)
Quarter: 2006Q4

REPORT INFORMATION
  Report Type: 
  Country: None (occurrence: None)
  Receive Date: 20061102
  Receipt Date: 20061024
  Transmission Date: 20070319
  Serious: Yes (Other)
  Sender: FDA-Public Use
  Company Number: 2006130000

PATIENT
  Age: 59 Year
  Sex: Male
  Weight: 130.1823 kg

DRUGS (3)
  1. GENOTROPIN [Suspect]
     Indication: HYPOPITUITARISM
     Dosage: 0.4 MG (0.4 MG, EVERYDAY)
     Dates: start: 20030101
  2. TESTOSTERONE [Concomitant]
  3. GLIMEPIRIDE [Concomitant]

REACTIONS (10)
  - ABNORMAL BEHAVIOUR [None]
  - AGGRESSION [None]
  - DEPRESSION [None]
  - DRUG DEPENDENCE [None]
  - EMOTIONAL DISTRESS [None]
  - FEAR [None]
  - GYNAECOMASTIA [None]
  - MALAISE [None]
  - MARITAL PROBLEM [None]
  - WEIGHT INCREASED [None]
